FAERS Safety Report 16008807 (Version 1)
Quarter: 2019Q1

REPORT INFORMATION
  Report Type: Spontaneous
  Country: US (occurrence: US)
  Receive Date: 20190225
  Receipt Date: 20190225
  Transmission Date: 20190418
  Serious: Yes (Other)
  Sender: FDA-Public Use
  Company Number: US-SA-2019SA050193

PATIENT
  Age: 41 Year
  Sex: Male

DRUGS (5)
  1. CLINDAMYCIN HCL [Concomitant]
     Active Substance: CLINDAMYCIN HYDROCHLORIDE
  2. RHINOCORT ALLERGY [Concomitant]
     Active Substance: BUDESONIDE
  3. POLYMYXIN B SULFATE AND TRIMETHOPRIM [POLYMYXIN B SULFATE;TRIMETHOPRIM [Concomitant]
  4. BREO ELLIPTA [Concomitant]
     Active Substance: FLUTICASONE FUROATE\VILANTEROL TRIFENATATE
  5. DUPIXENT [Suspect]
     Active Substance: DUPILUMAB
     Indication: DERMATITIS ATOPIC
     Dosage: 300 MG, QOW
     Route: 058
     Dates: start: 201802

REACTIONS (2)
  - Ocular hyperaemia [Unknown]
  - Eye infection staphylococcal [Unknown]
